FAERS Safety Report 5443526-4 (Version None)
Quarter: 2007Q3

REPORT INFORMATION
  Report Type: 
  Country: None (occurrence: None)
  Receive Date: 20070831
  Receipt Date: 20070816
  Transmission Date: 20080115
  Serious: Yes (Hospitalization, Other)
  Sender: FDA-Public Use
  Company Number: 236958K07USA

PATIENT
  Age: 44 Year
  Sex: Female

DRUGS (1)
  1. REBIF [Suspect]
     Indication: MULTIPLE SCLEROSIS
     Dosage: 22 MCG, 3 IN 1 WEEKS, SUBCUTANEOUS
     Route: 058
     Dates: start: 20051219

REACTIONS (8)
  - APPENDIX DISORDER [None]
  - CARBOHYDRATE ANTIGEN 19-9 INCREASED [None]
  - ENDOMETRIOSIS [None]
  - HEPATIC CYST [None]
  - HYSTERECTOMY [None]
  - NEURALGIA [None]
  - POLLAKIURIA [None]
  - RECTOCELE REPAIR [None]
